FAERS Safety Report 6107819-X (Version None)
Quarter: 2009Q1

REPORT INFORMATION
  Report Type: 
  Country: None (occurrence: None)
  Receive Date: 20090309
  Receipt Date: 20090304
  Transmission Date: 20090719
  Serious: Yes (Hospitalization)
  Sender: FDA-Public Use
  Company Number: D0060548A

PATIENT
  Age: 71 Year
  Sex: Female
  Weight: 63.7 kg

DRUGS (3)
  1. HYCAMTIN [Suspect]
     Dosage: 2.49MG PER DAY
     Route: 042
     Dates: start: 20090126, end: 20090130
  2. ZOFRAN [Concomitant]
     Indication: CHEMOTHERAPY
     Dosage: 8MG PER DAY
     Route: 042
     Dates: start: 20090126, end: 20090130
  3. SODIUM CHLORIDE [Concomitant]
     Indication: CHEMOTHERAPY
     Dosage: 250ML PER DAY
     Route: 042
     Dates: start: 20090126, end: 20090130

REACTIONS (8)
  - BONE MARROW FAILURE [None]
  - C-REACTIVE PROTEIN INCREASED [None]
  - DERMATITIS ALLERGIC [None]
  - ESCHERICHIA URINARY TRACT INFECTION [None]
  - FEBRILE NEUTROPENIA [None]
  - GENERAL PHYSICAL HEALTH DETERIORATION [None]
  - RASH MACULO-PAPULAR [None]
  - URINARY TRACT INFECTION ENTEROCOCCAL [None]
